FAERS Safety Report 11858066 (Version 1)
Quarter: 2015Q4

REPORT INFORMATION
  Report Type: Spontaneous
  Country: US (occurrence: US)
  Receive Date: 20151222
  Receipt Date: 20151222
  Transmission Date: 20160305
  Serious: Yes (Death, Other)
  Sender: FDA-Public Use
  Company Number: PHHY2015US128466

PATIENT
  Age: 70 Year
  Sex: Female
  Weight: 53.52 kg

DRUGS (11)
  1. STOOL SOFTENER [Concomitant]
     Active Substance: DOCUSATE CALCIUM
     Indication: PRODUCT USED FOR UNKNOWN INDICATION
     Route: 065
  2. ADVIL [Interacting]
     Active Substance: IBUPROFEN
     Dosage: UNK UNK, QD
     Route: 065
     Dates: start: 201501
  3. LIPITOR [Concomitant]
     Active Substance: ATORVASTATIN CALCIUM
     Indication: METASTATIC MALIGNANT MELANOMA
     Dosage: 20 MG, QD
     Route: 065
  4. MEKINIST [Suspect]
     Active Substance: TRAMETINIB DIMETHYL SULFOXIDE
     Indication: METASTATIC MALIGNANT MELANOMA
     Dosage: 2 MG, QD
     Route: 065
  5. ADVIL [Interacting]
     Active Substance: IBUPROFEN
     Indication: PRODUCT USED FOR UNKNOWN INDICATION
     Dosage: UNK
     Route: 065
  6. MAGNESIUM [Concomitant]
     Active Substance: MAGNESIUM
     Indication: PRODUCT USED FOR UNKNOWN INDICATION
     Route: 065
  7. TAFINLAR [Interacting]
     Active Substance: DABRAFENIB MESYLATE
     Indication: METASTATIC MALIGNANT MELANOMA
     Dosage: 150 MG, BID
     Route: 065
  8. MULTI VITAMIN [Concomitant]
     Active Substance: VITAMINS
     Indication: PRODUCT USED FOR UNKNOWN INDICATION
     Route: 065
  9. VITAMIN D [Concomitant]
     Active Substance: CHOLECALCIFEROL
     Indication: PRODUCT USED FOR UNKNOWN INDICATION
     Route: 065
  10. COENZYME [Concomitant]
     Active Substance: UBIDECARENONE
     Indication: PRODUCT USED FOR UNKNOWN INDICATION
     Dosage: Q 10 OT,
     Route: 065
  11. METAMUCIL [Concomitant]
     Active Substance: PLANTAGO SEED
     Indication: PRODUCT USED FOR UNKNOWN INDICATION
     Route: 065

REACTIONS (23)
  - Haematemesis [Unknown]
  - Insomnia [Not Recovered/Not Resolved]
  - Blood bilirubin decreased [Unknown]
  - Dermatitis acneiform [Recovered/Resolved]
  - Pruritus [Unknown]
  - Gastrointestinal haemorrhage [Fatal]
  - Drug interaction [Unknown]
  - Neutrophilia [Unknown]
  - Upper respiratory tract infection [Unknown]
  - White blood cell count increased [Not Recovered/Not Resolved]
  - Chills [Unknown]
  - Anaemia [Unknown]
  - Pyrexia [Recovered/Resolved]
  - Meningioma [Unknown]
  - Oropharyngeal pain [Unknown]
  - Claustrophobia [Unknown]
  - Blood pressure increased [Unknown]
  - Constipation [Not Recovered/Not Resolved]
  - Fatigue [Recovered/Resolved]
  - Limb discomfort [Recovered/Resolved]
  - Blood albumin decreased [Unknown]
  - Abdominal pain upper [Not Recovered/Not Resolved]
  - Respiratory tract congestion [Unknown]

NARRATIVE: CASE EVENT DATE: 201407
